FAERS Safety Report 17111410 (Version 1)
Quarter: 2019Q4

REPORT INFORMATION
  Report Type: Spontaneous
  Country: US (occurrence: US)
  Receive Date: 20191203
  Receipt Date: 20191203
  Transmission Date: 20200122
  Serious: Yes (Hospitalization)
  Sender: FDA-Public Use
  Company Number: None

PATIENT
  Age: 41 Year
  Sex: Male
  Weight: 131.3 kg

DRUGS (17)
  1. ALBUTEROL. [Concomitant]
     Active Substance: ALBUTEROL
  2. OMEPRAZOLE. [Concomitant]
     Active Substance: OMEPRAZOLE
  3. CARVEDILOL. [Concomitant]
     Active Substance: CARVEDILOL
  4. LOSARTAN. [Concomitant]
     Active Substance: LOSARTAN
  5. OLANZAPRINE [Concomitant]
  6. SERTALINE [Concomitant]
     Active Substance: SERTRALINE HYDROCHLORIDE
  7. DAPSONE. [Concomitant]
     Active Substance: DAPSONE
  8. IPRATROPIUM [Concomitant]
     Active Substance: IPRATROPIUM
  9. MECLIZINE [Concomitant]
     Active Substance: MECLIZINE HYDROCHLORIDE
  10. OXYCONDONE [Concomitant]
  11. DOXYCYLINE [Concomitant]
     Active Substance: DOXYCYCLINE
  12. LEVETIRACETAM. [Concomitant]
     Active Substance: LEVETIRACETAM
  13. MONTELUKAST [Concomitant]
     Active Substance: MONTELUKAST SODIUM
  14. AXICABTAGENE CILOLEUCEL [Suspect]
     Active Substance: AXICABTAGENE CILOLEUCEL
     Indication: DIFFUSE LARGE B-CELL LYMPHOMA
     Dosage: ?          OTHER FREQUENCY:ONCE;?
     Route: 041
     Dates: start: 20181231, end: 20181231
  15. ACYCLOVIR. [Concomitant]
     Active Substance: ACYCLOVIR
  16. AMOXICILLIN. [Concomitant]
     Active Substance: AMOXICILLIN
  17. ENOXAPARIN [Concomitant]
     Active Substance: ENOXAPARIN

REACTIONS (5)
  - Neurotoxicity [None]
  - Cytokine release syndrome [None]
  - Hypotension [None]
  - Sleep apnoea syndrome [None]
  - Lymphocyte adoptive therapy [None]

NARRATIVE: CASE EVENT DATE: 20181231
